FAERS Safety Report 14606047 (Version 2)
Quarter: 2018Q3

REPORT INFORMATION
  Report Type: Spontaneous
  Country: FR (occurrence: FR)
  Receive Date: 20180307
  Receipt Date: 20180703
  Transmission Date: 20181010
  Serious: Yes (Other)
  Sender: FDA-Public Use
  Company Number: FR-MERCK KGAA-2043135

PATIENT
  Age: 63 Year
  Sex: Female
  Weight: 57 kg

DRUGS (1)
  1. NOVOTHYROX [Suspect]
     Active Substance: LEVOTHYROXINE SODIUM
     Indication: THYROIDECTOMY
     Route: 048
     Dates: start: 20170415, end: 20170925

REACTIONS (27)
  - Onychoclasis [Unknown]
  - Loss of personal independence in daily activities [Unknown]
  - Hypothyroidism [Recovering/Resolving]
  - Tachycardia [Unknown]
  - Insomnia [Recovering/Resolving]
  - Malaise [Unknown]
  - Dizziness [Unknown]
  - Heart rate irregular [Unknown]
  - Dry eye [Not Recovered/Not Resolved]
  - Muscle spasms [Recovering/Resolving]
  - Diarrhoea [Recovering/Resolving]
  - Constipation [Recovering/Resolving]
  - Emotional disorder [Unknown]
  - Asthenia [Recovering/Resolving]
  - Headache [Recovering/Resolving]
  - Night sweats [Not Recovered/Not Resolved]
  - Alopecia [Not Recovered/Not Resolved]
  - Myalgia [Recovering/Resolving]
  - Nail ridging [Unknown]
  - Dyspepsia [Recovering/Resolving]
  - Blood thyroid stimulating hormone normal [Unknown]
  - Feeling abnormal [Unknown]
  - Crying [Unknown]
  - Hypertension [Unknown]
  - Fatigue [Not Recovered/Not Resolved]
  - Gait disturbance [Unknown]
  - Mood swings [Recovering/Resolving]

NARRATIVE: CASE EVENT DATE: 20170501
